FAERS Safety Report 23545748 (Version 1)
Quarter: 2024Q1

REPORT INFORMATION
  Report Type: Report from Study
  Country: US (occurrence: US)
  Receive Date: 20240220
  Receipt Date: 20240220
  Transmission Date: 20240410
  Serious: Yes (Other)
  Sender: FDA-Public Use
  Company Number: US-BAYER-2024A024955

PATIENT
  Age: 70 Year
  Sex: Female
  Weight: 77.551 kg

DRUGS (27)
  1. ADEMPAS [Suspect]
     Active Substance: RIOCIGUAT
     Indication: Pulmonary arterial hypertension
     Dosage: UNK
     Route: 048
     Dates: start: 20240122
  2. ADEMPAS [Suspect]
     Active Substance: RIOCIGUAT
     Indication: Pulmonary arterial hypertension
     Dosage: 2.5 MG, TID
     Route: 048
  3. OMEPRAZOLE [Concomitant]
     Active Substance: OMEPRAZOLE
  4. UPTRAVI [Concomitant]
     Active Substance: SELEXIPAG
  5. FUROSEMIDE [Concomitant]
     Active Substance: FUROSEMIDE
  6. PILOCARPINE HYDROCHLORIDE [Concomitant]
     Active Substance: PILOCARPINE HYDROCHLORIDE
  7. ACETAMINOPHEN\HYDROCODONE [Concomitant]
     Active Substance: ACETAMINOPHEN\HYDROCODONE
  8. ELIQUIS [Concomitant]
     Active Substance: APIXABAN
  9. MAGNESIUM [Concomitant]
     Active Substance: MAGNESIUM
  10. PREDNISONE [Concomitant]
     Active Substance: PREDNISONE
  11. POTASSIUM CHLORIDE [Concomitant]
     Active Substance: POTASSIUM CHLORIDE
  12. B12 ACTIVE [Concomitant]
  13. CEFADROXIL [Concomitant]
     Active Substance: CEFADROXIL
  14. FAMOTIDINE [Concomitant]
     Active Substance: FAMOTIDINE
  15. RESTASIS [Concomitant]
     Active Substance: CYCLOSPORINE
  16. FLUTICASONE PROPIONATE [Concomitant]
     Active Substance: FLUTICASONE PROPIONATE
  17. GRAPE SEED EXTRACT [VITIS VINIFERA SEED] [Concomitant]
  18. OXYGEN [Concomitant]
     Active Substance: OXYGEN
  19. FOLIC ACID [Concomitant]
     Active Substance: FOLIC ACID
  20. ALPRAZOLAM [Concomitant]
     Active Substance: ALPRAZOLAM
  21. GABAPENTIN [Concomitant]
     Active Substance: GABAPENTIN
  22. MODERNA COVID-19 VACCINE [Concomitant]
     Active Substance: ELASOMERAN
  23. SHINGRIX [Concomitant]
     Active Substance: RECOMBINANT VARICELLA ZOSTER VIRUS (VZV) GLYCOPROTEIN E
  24. CETIRIZINE HCL [Concomitant]
     Active Substance: CETIRIZINE HYDROCHLORIDE
  25. HYDROXYZINE HYDROCHLORIDE [Concomitant]
     Active Substance: HYDROXYZINE HYDROCHLORIDE
  26. TYLENOL EXTRA STRENGTH [Concomitant]
     Active Substance: ACETAMINOPHEN
  27. AMBRISENTAN [Concomitant]
     Active Substance: AMBRISENTAN

REACTIONS (1)
  - Hypersensitivity [None]
